FAERS Safety Report 10446882 (Version 1)
Quarter: 2014Q3

REPORT INFORMATION
  Report Type: Spontaneous
  Country: US (occurrence: US)
  Receive Date: 20140911
  Receipt Date: 20140911
  Transmission Date: 20150326
  Serious: Yes (Hospitalization)
  Sender: FDA-Public Use
  Company Number: US-ASTRAZENECA-2014SE66785

PATIENT
  Sex: Male

DRUGS (4)
  1. QUETIAPINE [Suspect]
     Active Substance: QUETIAPINE
     Indication: THINKING ABNORMAL
     Dosage: 800MG AT NIGHT, 100MG IN THE AM, AND SOMETIMES 200MG IN THE AFTERNOON
     Route: 048
  2. QUETIAPINE [Suspect]
     Active Substance: QUETIAPINE
     Indication: SLEEP DISORDER
     Dosage: 800MG AT NIGHT, 100MG IN THE AM, AND SOMETIMES 200MG IN THE AFTERNOON
     Route: 048
  3. KLONOPIN [Concomitant]
     Active Substance: CLONAZEPAM
  4. LORAZEPAM. [Concomitant]
     Active Substance: LORAZEPAM

REACTIONS (5)
  - Anxiety [Unknown]
  - Diabetes mellitus [Unknown]
  - Hallucination [Unknown]
  - Intentional product misuse [Unknown]
  - Abnormal behaviour [Unknown]
